FAERS Safety Report 9893375 (Version 1)
Quarter: 2014Q1

REPORT INFORMATION
  Report Type: Spontaneous
  Country: DE (occurrence: DE)
  Receive Date: 20140213
  Receipt Date: 20140213
  Transmission Date: 20141002
  Serious: Yes (Life-Threatening, Hospitalization)
  Sender: FDA-Public Use
  Company Number: DE-TEVA-460997GER

PATIENT
  Age: 47 Year
  Sex: Female

DRUGS (10)
  1. METOPROLOL [Suspect]
     Dosage: 47.5 MILLIGRAM DAILY;
     Route: 048
     Dates: start: 20060601, end: 20060623
  2. CIPRAMIL [Suspect]
     Dosage: 10 MILLIGRAM DAILY;
     Route: 048
     Dates: start: 20060607, end: 20060610
  3. CIPRAMIL [Suspect]
     Dosage: 20 MILLIGRAM DAILY;
     Route: 048
     Dates: start: 20060611, end: 20060614
  4. CIPRAMIL [Suspect]
     Dosage: 15 MILLIGRAM DAILY;
     Route: 048
     Dates: start: 20060615, end: 20060725
  5. QUILONORM RETARD [Suspect]
     Dosage: 225 MILLIGRAM DAILY;
     Route: 048
     Dates: start: 20060712, end: 20060717
  6. QUILONORM RETARD [Suspect]
     Dosage: 450 MILLIGRAM DAILY;
     Route: 048
     Dates: start: 20060718, end: 20060725
  7. TAVOR [Concomitant]
     Dosage: 2 MILLIGRAM DAILY;
     Route: 048
     Dates: start: 20060606, end: 20060614
  8. TAVOR [Concomitant]
     Dosage: 1 MILLIGRAM DAILY;
     Route: 048
     Dates: start: 20060615, end: 20060629
  9. TAVOR [Concomitant]
     Dosage: .5 MILLIGRAM DAILY;
     Route: 048
     Dates: start: 20060630
  10. DIPIPERON [Concomitant]
     Dosage: 120 MILLIGRAM DAILY;
     Route: 048
     Dates: start: 20060804, end: 20060809

REACTIONS (5)
  - Sinus bradycardia [Recovered/Resolved]
  - Hypothyroidism [Recovered/Resolved]
  - Hypotonia [Recovered/Resolved]
  - Dysarthria [Recovered/Resolved]
  - Altered state of consciousness [Recovered/Resolved]
